FAERS Safety Report 13125385 (Version 8)
Quarter: 2017Q2

REPORT INFORMATION
  Report Type: Spontaneous
  Country: US (occurrence: US)
  Receive Date: 20170118
  Receipt Date: 20170609
  Transmission Date: 20170830
  Serious: Yes (Hospitalization, Other)
  Sender: FDA-Public Use
  Company Number: US-PFIZER INC-2017018551

PATIENT
  Age: 74 Year
  Sex: Female
  Weight: 64.4 kg

DRUGS (4)
  1. IBRANCE [Suspect]
     Active Substance: PALBOCICLIB
     Dosage: 125 MG, CYCLIC (DAILY 1-21 EVERY 28 DAYS)
     Route: 048
     Dates: start: 20161231
  2. IBRANCE [Suspect]
     Active Substance: PALBOCICLIB
     Indication: BREAST CANCER METASTATIC
     Dosage: 125 MG, CYCLIC (DAILY 1-21 EVERY 28 DAYS)
     Route: 048
     Dates: start: 20161221, end: 20170418
  3. IBRANCE [Suspect]
     Active Substance: PALBOCICLIB
     Dosage: 125 MG, CYCLIC (DAILY 1-21 EVERY 28 DAYS)
     Route: 048
     Dates: start: 20161231
  4. IBRANCE [Suspect]
     Active Substance: PALBOCICLIB
     Dosage: 125 MG, CYCLIC (QD X 3 WEEKS, THEN OFF 1 WEEK)
     Route: 048
     Dates: start: 20161202, end: 20170418

REACTIONS (29)
  - Eye infection bacterial [Not Recovered/Not Resolved]
  - White blood cell count decreased [Recovering/Resolving]
  - Sinus congestion [Unknown]
  - Feeling abnormal [Unknown]
  - Epistaxis [Not Recovered/Not Resolved]
  - Immune system disorder [Unknown]
  - Weight decreased [Unknown]
  - Cerebral haemorrhage [Not Recovered/Not Resolved]
  - Asthenia [Unknown]
  - Coma [Unknown]
  - Rib fracture [Unknown]
  - Abasia [Not Recovered/Not Resolved]
  - Speech disorder [Unknown]
  - Vomiting [Unknown]
  - Pollakiuria [Unknown]
  - Pain [Unknown]
  - Dry mouth [Unknown]
  - Stomatitis [Unknown]
  - Condition aggravated [Not Recovered/Not Resolved]
  - Productive cough [Unknown]
  - Nausea [Unknown]
  - Chapped lips [Unknown]
  - Anaemia [Not Recovered/Not Resolved]
  - Haemoglobin decreased [Recovering/Resolving]
  - Viral upper respiratory tract infection [Unknown]
  - Fatigue [Unknown]
  - Diarrhoea [Unknown]
  - Sneezing [Unknown]
  - Oral pain [Unknown]

NARRATIVE: CASE EVENT DATE: 2017
